FAERS Safety Report 8019385-2 (Version None)
Quarter: 2012Q1

REPORT INFORMATION
  Report Type: 
  Country: None (occurrence: None)
  Receive Date: 20120103
  Receipt Date: 20111223
  Transmission Date: 20120608
  Serious: Yes (Hospitalization, Other)
  Sender: FDA-Public Use
  Company Number: PHHY2011CA111879

PATIENT
  Sex: Male

DRUGS (1)
  1. CLOZARIL [Suspect]
     Indication: SCHIZOPHRENIA
     Dates: start: 20110727

REACTIONS (4)
  - BLADDER CANCER [None]
  - BLADDER DISORDER [None]
  - PNEUMONIA ASPIRATION [None]
  - URINARY TRACT INFECTION [None]
